FAERS Safety Report 22122764 (Version 1)
Quarter: 2023Q1

REPORT INFORMATION
  Report Type: Spontaneous
  Country: GB (occurrence: None)
  Receive Date: 20230321
  Receipt Date: 20230321
  Transmission Date: 20230418
  Serious: Yes (Hospitalization, Other)
  Sender: FDA-Public Use
  Company Number: GB-VistaPharm, Inc.-VER202303-000165

PATIENT
  Sex: Female

DRUGS (1)
  1. ACETAMINOPHEN\HYDROCODONE [Suspect]
     Active Substance: ACETAMINOPHEN\HYDROCODONE
     Indication: Product used for unknown indication
     Dosage: 7.5 G
     Route: 065

REACTIONS (3)
  - Acute kidney injury [Recovered/Resolved]
  - Toxicity to various agents [Unknown]
  - Overdose [Unknown]
